FAERS Safety Report 19883558 (Version 2)
Quarter: 2021Q4

REPORT INFORMATION
  Report Type: Report from Study
  Country: None (occurrence: AU)
  Receive Date: 20210927
  Receipt Date: 20211005
  Transmission Date: 20220303
  Serious: Yes (Other)
  Sender: FDA-Public Use
  Company Number: AU-ABBVIE-21K-008-4092643-00

PATIENT
  Sex: Female

DRUGS (2)
  1. CARBIDOPA\LEVODOPA [Suspect]
     Active Substance: CARBIDOPA\LEVODOPA
     Indication: Parkinson^s disease
     Route: 050
     Dates: start: 20201225
  2. CARBIDOPA\LEVODOPA [Suspect]
     Active Substance: CARBIDOPA\LEVODOPA
     Dosage: DECREASE IN CONTINUOUS RATE TO 2.0 ML PER HR
     Route: 050
     Dates: start: 2021

REACTIONS (4)
  - Jejunal perforation [Recovered/Resolved]
  - Device kink [Recovered/Resolved]
  - On and off phenomenon [Not Recovered/Not Resolved]
  - Procedural pain [Unknown]

NARRATIVE: CASE EVENT DATE: 20210101
